FAERS Safety Report 19708155 (Version 1)
Quarter: 2021Q3

REPORT INFORMATION
  Report Type: Spontaneous
  Country: US (occurrence: US)
  Receive Date: 20210817
  Receipt Date: 20210817
  Transmission Date: 20211014
  Serious: No
  Sender: FDA-Public Use
  Company Number: None

PATIENT
  Age: 55 Year
  Sex: Female

DRUGS (1)
  1. ICY HOT MEDICATED NO MESS APPLICATOR [Suspect]
     Active Substance: MENTHOL
     Indication: MUSCULOSKELETAL STIFFNESS
     Route: 061
     Dates: start: 20210815, end: 20210816

REACTIONS (3)
  - Application site pain [None]
  - Dry skin [None]
  - Application site burn [None]

NARRATIVE: CASE EVENT DATE: 20210816
